FAERS Safety Report 5142533-9 (Version None)
Quarter: 2006Q4

REPORT INFORMATION
  Report Type: 
  Country: None (occurrence: None)
  Receive Date: 20061102
  Receipt Date: 20061023
  Transmission Date: 20070319
  Serious: Yes (Hospitalization)
  Sender: FDA-Public Use
  Company Number: FR-SANOFI-SYNTHELABO-A02200602693

PATIENT
  Age: 83 Year
  Sex: Male

DRUGS (8)
  1. ALLOPURINOL [Concomitant]
     Dosage: UNK
     Route: 048
  2. PROSCAR [Concomitant]
     Dosage: UNK
     Route: 048
  3. ADANCOR [Concomitant]
     Dosage: UNK
     Route: 048
  4. COAPROVEL [Suspect]
     Indication: DRUG USE FOR UNKNOWN INDICATION
     Dosage: UNK
     Route: 048
     Dates: end: 20060913
  5. MONO-TILDIEM [Concomitant]
     Dosage: UNK
     Route: 048
  6. FELDENE [Suspect]
     Indication: DRUG USE FOR UNKNOWN INDICATION
     Dosage: UNK
     Route: 065
     Dates: end: 20060913
  7. INIPOMP [Concomitant]
     Dosage: UNK
     Route: 048
  8. XATRAL [Suspect]
     Indication: BENIGN PROSTATIC HYPERPLASIA
     Dosage: UNK
     Route: 048
     Dates: end: 20060913

REACTIONS (5)
  - ABDOMINAL PAIN [None]
  - DIARRHOEA [None]
  - RENAL CYST [None]
  - RENAL FAILURE ACUTE [None]
  - RHABDOMYOLYSIS [None]
